FAERS Safety Report 10272912 (Version 2)
Quarter: 2014Q3

REPORT INFORMATION
  Report Type: Report from Study
  Country: BR (occurrence: BR)
  Receive Date: 20140702
  Receipt Date: 20140731
  Transmission Date: 20150326
  Serious: Yes (Other)
  Sender: FDA-Public Use
  Company Number: PHHY2014BR081392

PATIENT
  Sex: Female
  Weight: 68 kg

DRUGS (1)
  1. RASILEZ HCT [Suspect]
     Active Substance: ALISKIREN\HYDROCHLOROTHIAZIDE
     Indication: HYPERTENSION
     Dosage: 1 TABLET (300/12.5 MG) A DAY
     Route: 048
     Dates: start: 2011, end: 201406

REACTIONS (8)
  - Pain [Recovered/Resolved]
  - Malaise [Recovered/Resolved]
  - Hiatus hernia [Recovered/Resolved]
  - Blood pressure increased [Recovered/Resolved]
  - Fear [Recovered/Resolved]
  - Chest pain [Recovered/Resolved]
  - Helicobacter infection [Recovered/Resolved]
  - Drug ineffective [Recovered/Resolved]
